FAERS Safety Report 10891103 (Version 1)
Quarter: 2015Q1

REPORT INFORMATION
  Report Type: Spontaneous
  Country: CA (occurrence: CA)
  Receive Date: 20150305
  Receipt Date: 20150305
  Transmission Date: 20150721
  Serious: Yes (Hospitalization)
  Sender: FDA-Public Use
  Company Number: CA-BAYER-2015-029515

PATIENT
  Age: 53 Year
  Sex: Male
  Weight: 91 kg

DRUGS (12)
  1. LEVEMIR [Suspect]
     Active Substance: INSULIN DETEMIR
     Dosage: UNK
  2. SUTENT [Suspect]
     Active Substance: SUNITINIB MALATE
     Dosage: 50 MG, 1 EVERY 1 DAY
  3. CADUET [Concomitant]
     Active Substance: AMLODIPINE BESYLATE\ATORVASTATIN CALCIUM
     Dosage: UNK
  4. AVANDAMET [Suspect]
     Active Substance: METFORMIN HYDROCHLORIDE\ROSIGLITAZONE MALEATE
     Dosage: UNK
  5. NEXAVAR [Suspect]
     Active Substance: SORAFENIB
     Dosage: 400 MG, 2 EVERY 1 DAY(S)
     Route: 048
  6. DIAMICRON [Concomitant]
     Active Substance: GLICLAZIDE
     Dosage: UNK
  7. METOPROLOL [Suspect]
     Active Substance: METOPROLOL
     Dosage: UNK
  8. ASA [Concomitant]
     Active Substance: ASPIRIN
     Dosage: UNK
  9. GLICLAZIDE [Suspect]
     Active Substance: GLICLAZIDE
     Dosage: UNK
  10. JANUVIA [Suspect]
     Active Substance: SITAGLIPTIN PHOSPHATE
     Dosage: UNK
  11. AVALIDE [Concomitant]
     Active Substance: HYDROCHLOROTHIAZIDE\IRBESARTAN
     Dosage: UNK
  12. LISINOPRIL. [Concomitant]
     Active Substance: LISINOPRIL
     Dosage: UNK

REACTIONS (3)
  - Hypoglycaemia [None]
  - Vomiting projectile [None]
  - Metabolic acidosis [None]
